FAERS Safety Report 24762174 (Version 1)
Quarter: 2024Q4

REPORT INFORMATION
  Report Type: Spontaneous
  Country: FR (occurrence: FR)
  Receive Date: 20241221
  Receipt Date: 20241221
  Transmission Date: 20250115
  Serious: Yes (Death, Hospitalization, Other)
  Sender: AMGEN
  Company Number: FR-AMGEN-FRASP2024250038

PATIENT

DRUGS (12)
  1. APREMILAST [Suspect]
     Active Substance: APREMILAST
     Indication: Connective tissue disorder
     Dosage: UNK
     Route: 065
  2. APREMILAST [Suspect]
     Active Substance: APREMILAST
     Indication: Rheumatoid arthritis
  3. APREMILAST [Suspect]
     Active Substance: APREMILAST
     Indication: Off label use
  4. APREMILAST [Suspect]
     Active Substance: APREMILAST
     Indication: Systemic lupus erythematosus
  5. APREMILAST [Suspect]
     Active Substance: APREMILAST
     Indication: Myopathy
  6. APREMILAST [Suspect]
     Active Substance: APREMILAST
     Indication: Sjogren^s syndrome
  7. ADALIMUMAB [Suspect]
     Active Substance: ADALIMUMAB
     Indication: Connective tissue disorder
     Dosage: UNK
     Route: 065
  8. ADALIMUMAB [Suspect]
     Active Substance: ADALIMUMAB
     Indication: Rheumatoid arthritis
  9. ADALIMUMAB [Suspect]
     Active Substance: ADALIMUMAB
     Indication: Systemic lupus erythematosus
  10. ADALIMUMAB [Suspect]
     Active Substance: ADALIMUMAB
     Indication: Myopathy
  11. ADALIMUMAB [Suspect]
     Active Substance: ADALIMUMAB
     Indication: Sjogren^s syndrome
  12. PREDNISONE [Suspect]
     Active Substance: PREDNISONE
     Indication: Product used for unknown indication
     Dosage: UNK
     Route: 065

REACTIONS (2)
  - COVID-19 [Fatal]
  - Off label use [Unknown]
